FAERS Safety Report 9337932 (Version 1)
Quarter: 2013Q2

REPORT INFORMATION
  Report Type: Spontaneous
  Country: TR (occurrence: TR)
  Receive Date: 20130610
  Receipt Date: 20130610
  Transmission Date: 20140414
  Serious: Yes (Hospitalization)
  Sender: FDA-Public Use
  Company Number: TR-MYLANLABS-2013S1011874

PATIENT
  Age: 88 Year
  Sex: Male

DRUGS (1)
  1. WARFARIN [Suspect]
     Indication: ANTICOAGULANT THERAPY
     Dosage: 5 MG/DAY
     Route: 065

REACTIONS (3)
  - Blindness cortical [Unknown]
  - Cerebral haematoma [Recovering/Resolving]
  - Overdose [Unknown]
